FAERS Safety Report 13852428 (Version 2)
Quarter: 2017Q3

REPORT INFORMATION
  Report Type: Spontaneous
  Country: US (occurrence: US)
  Receive Date: 20170810
  Receipt Date: 20170908
  Transmission Date: 20171127
  Serious: Yes (Hospitalization, Other)
  Sender: FDA-Public Use
  Company Number: US-GEMINI LABORATORIES, LLC-GEM201708-000009

PATIENT
  Age: 72 Year
  Sex: Male
  Weight: 90 kg

DRUGS (8)
  1. LISINOPRIL. [Concomitant]
     Active Substance: LISINOPRIL
     Indication: HYPERTENSION
  2. PRANDIN [Suspect]
     Active Substance: REPAGLINIDE
  3. PRANDIN [Suspect]
     Active Substance: REPAGLINIDE
     Indication: DIABETES MELLITUS
     Dates: start: 2002
  4. METFORMIN [Concomitant]
     Active Substance: METFORMIN HYDROCHLORIDE
  5. LIPITOR [Concomitant]
     Active Substance: ATORVASTATIN CALCIUM
     Indication: BLOOD CHOLESTEROL
  6. PRANDIN [Suspect]
     Active Substance: REPAGLINIDE
  7. LISINOPRIL. [Concomitant]
     Active Substance: LISINOPRIL
     Indication: BLOOD GLUCOSE INCREASED
  8. GLIMEPIRIDE. [Concomitant]
     Active Substance: GLIMEPIRIDE

REACTIONS (10)
  - Condition aggravated [Unknown]
  - Weight decreased [Unknown]
  - Vomiting [Unknown]
  - Cholecystitis [Recovered/Resolved]
  - Blood glucose increased [Unknown]
  - Blood glucose increased [Recovered/Resolved]
  - Unresponsive to stimuli [Recovered/Resolved]
  - Abdominal discomfort [Recovered/Resolved]
  - Cholecystectomy [Unknown]
  - Medication error [Unknown]

NARRATIVE: CASE EVENT DATE: 201704
